FAERS Safety Report 16642906 (Version 2)
Quarter: 2019Q3

REPORT INFORMATION
  Report Type: Report from Study
  Country: CA (occurrence: CA)
  Receive Date: 20190729
  Receipt Date: 20190807
  Transmission Date: 20191004
  Serious: Yes (Other)
  Sender: FDA-Public Use
  Company Number: CA-SAMSUNG BIOEPIS-SB-2019-20330

PATIENT
  Sex: Male

DRUGS (1)
  1. RENFLEXIS [Suspect]
     Active Substance: INFLIXIMAB-ABDA
     Indication: COLITIS ULCERATIVE
     Dosage: 1000 MG, WEEK 6
     Route: 042
     Dates: start: 20190718

REACTIONS (4)
  - Dyspnoea [Recovered/Resolved]
  - Chest discomfort [Recovered/Resolved]
  - Flushing [Recovering/Resolving]
  - Hyperhidrosis [Recovering/Resolving]
